FAERS Safety Report 8536624-X (Version None)
Quarter: 2012Q3

REPORT INFORMATION
  Report Type: 
  Country: None (occurrence: None)
  Receive Date: 20120725
  Receipt Date: 20120725
  Transmission Date: 20120928
  Serious: No
  Sender: FDA-Public Use
  Company Number: US-PFIZER INC-2012027320

PATIENT
  Sex: Female

DRUGS (19)
  1. INTAL [Suspect]
     Dosage: UNK
  2. PROCARDIA [Suspect]
     Dosage: UNK
  3. NALBUPHINE HYDROCHLORIDE [Suspect]
     Dosage: UNK
  4. HYDROMORPHINE HYDROCHLORIDE [Suspect]
     Dosage: UNK
  5. NEXIUM [Suspect]
     Dosage: UNK
  6. FLOVENT [Suspect]
     Dosage: UNK
  7. FLUTICASONE FUROATE [Suspect]
     Dosage: UNK
  8. OXYCODONE HCL [Suspect]
     Dosage: UNK
  9. MAGNESIUM SULFATE [Suspect]
     Dosage: UNK
  10. PROTONIX [Suspect]
     Dosage: UNK
  11. ADVAIR DISKUS 100/50 [Suspect]
     Dosage: UNK
  12. ACTONEL [Suspect]
     Dosage: UNK
  13. AZMACORT [Suspect]
     Dosage: UNK
  14. NAPROXEN [Suspect]
     Dosage: UNK
  15. MELOXICAM [Suspect]
     Dosage: UNK
  16. MS CONTIN [Suspect]
     Dosage: UNK
  17. CLARINEX [Suspect]
     Dosage: UNK
  18. FORMOTEROL FUMARATE [Suspect]
     Dosage: UNK
  19. LEVBID [Suspect]
     Dosage: UNK

REACTIONS (1)
  - DRUG HYPERSENSITIVITY [None]
